FAERS Safety Report 20065964 (Version 2)
Quarter: 2021Q4

REPORT INFORMATION
  Report Type: Spontaneous
  Country: US (occurrence: US)
  Receive Date: 20211114
  Receipt Date: 20211117
  Transmission Date: 20220303
  Serious: Yes (Other)
  Sender: FDA-Public Use
  Company Number: US-TORRENT-00011313

PATIENT
  Age: 61 Year
  Sex: Male

DRUGS (1)
  1. LOSARTAN [Suspect]
     Active Substance: LOSARTAN
     Indication: Diabetes mellitus
     Dosage: 100 MG DAILY

REACTIONS (2)
  - Hypokalaemia [Unknown]
  - Symptom masked [Unknown]
